FAERS Safety Report 10081368 (Version 1)
Quarter: 2014Q2

REPORT INFORMATION
  Report Type: Spontaneous
  Country: US (occurrence: US)
  Receive Date: 20140416
  Receipt Date: 20140416
  Transmission Date: 20141212
  Serious: No
  Sender: FDA-Public Use
  Company Number: US-PFIZER INC-2014104857

PATIENT
  Sex: 0

DRUGS (3)
  1. XELJANZ [Suspect]
     Dosage: UNK
  2. METHOTREXATE SODIUM [Suspect]
     Indication: CHEMOTHERAPY
     Dosage: UNK, AT 4PM
  3. ORENCIA [Suspect]
     Dosage: UNK, AT 4PM

REACTIONS (2)
  - Migraine [Unknown]
  - Nausea [Unknown]
